FAERS Safety Report 18931591 (Version 1)
Quarter: 2021Q1

REPORT INFORMATION
  Report Type: Spontaneous
  Country: US (occurrence: US)
  Receive Date: 20210223
  Receipt Date: 20210223
  Transmission Date: 20210420
  Serious: No
  Sender: FDA-Public Use
  Company Number: US-IGSA-SR10010216

PATIENT
  Age: 46 Year
  Sex: Female
  Weight: 87 kg

DRUGS (25)
  1. PROLASTIN?C LIQUID [Suspect]
     Active Substance: .ALPHA.1-PROTEINASE INHIBITOR HUMAN
     Dosage: 7830 MG, Q.WK.
     Route: 042
     Dates: start: 20200428
  2. PULMICORT FLEXHALER [Concomitant]
     Active Substance: BUDESONIDE
  3. INCRUSE ELLIPTA [Concomitant]
     Active Substance: UMECLIDINIUM BROMIDE
  4. SUMATRIPTAN SUCCINATE. [Concomitant]
     Active Substance: SUMATRIPTAN SUCCINATE
  5. DUPIXENT [Concomitant]
     Active Substance: DUPILUMAB
  6. SUPER B COMPLEX MAXI                   /09485401/ [Concomitant]
  7. MSM [Concomitant]
     Active Substance: DIMETHYL SULFONE
  8. PROLASTIN?C LIQUID [Suspect]
     Active Substance: .ALPHA.1-PROTEINASE INHIBITOR HUMAN
     Indication: ALPHA-1 ANTITRYPSIN DEFICIENCY
     Dosage: 7830 MG, Q.WK.
     Route: 042
     Dates: start: 20200421
  9. ACETYLCYSTEINE. [Concomitant]
     Active Substance: ACETYLCYSTEINE
  10. VITAMIN C  ER                         /00008001/ [Concomitant]
  11. VITAMIN K2                         /00357701/ [Concomitant]
     Active Substance: MENATETRENONE
  12. PROAIR HFA [Concomitant]
     Active Substance: ALBUTEROL SULFATE
  13. PROGESTERONE  MICRONIZED [Concomitant]
  14. SPIRIVA [Concomitant]
     Active Substance: TIOTROPIUM BROMIDE MONOHYDRATE
  15. MAG?OX [Concomitant]
     Active Substance: MAGNESIUM OXIDE
  16. VITAMIN D3 [Concomitant]
     Active Substance: CHOLECALCIFEROL
  17. FEMRING [Concomitant]
     Active Substance: ESTRADIOL ACETATE
  18. BREO ELLIPTA [Concomitant]
     Active Substance: FLUTICASONE FUROATE\VILANTEROL TRIFENATATE
  19. BENADRYL                           /00945501/ [Concomitant]
     Active Substance: ACRIVASTINE
     Indication: PREMEDICATION
     Dosage: UNK
     Dates: start: 20200428
  20. THEO?24 [Concomitant]
     Active Substance: THEOPHYLLINE ANHYDROUS
  21. DALIRESP [Concomitant]
     Active Substance: ROFLUMILAST
  22. AZITHROMYCIN ANHYDROUS. [Concomitant]
     Active Substance: AZITHROMYCIN ANHYDROUS
  23. TRELEGY ELLIPTA [Concomitant]
     Active Substance: FLUTICASONE FUROATE\UMECLIDINIUM BROMIDE\VILANTEROL TRIFENATATE
  24. COENZYME Q10 [Concomitant]
     Active Substance: DIETARY SUPPLEMENT\UBIDECARENONE
  25. PROLASTIN?C LIQUID [Suspect]
     Active Substance: .ALPHA.1-PROTEINASE INHIBITOR HUMAN
     Dosage: 7830 MG, Q.WK.
     Route: 042
     Dates: start: 20180809

REACTIONS (3)
  - Feeling cold [Recovering/Resolving]
  - Nasal congestion [Recovering/Resolving]
  - Blood pressure decreased [Recovering/Resolving]

NARRATIVE: CASE EVENT DATE: 20200421
